FAERS Safety Report 4759978-9 (Version None)
Quarter: 2005Q3

REPORT INFORMATION
  Report Type: 
  Country: None (occurrence: None)
  Receive Date: 20050831
  Receipt Date: 20050818
  Transmission Date: 20060218
  Serious: Yes (Hospitalization)
  Sender: FDA-Public Use
  Company Number: 2005117133

PATIENT
  Age: 78 Year
  Sex: Female
  Weight: 65.7716 kg

DRUGS (13)
  1. XALATAN [Suspect]
     Indication: GLAUCOMA
     Dosage: 3 MCG (1.5 MCG, DAILY INTERVAL: EVERY DAY), OPHTHALMIC
     Route: 047
  2. COZAAR [Concomitant]
  3. PREDNISONE [Concomitant]
  4. COUMADIN [Concomitant]
  5. REMICADE [Concomitant]
  6. FOLIC ACID [Concomitant]
  7. TRIAMTERENE (TRIAMTERENE) [Concomitant]
  8. MULTIVITAMIN (ASCORBIC ACID, ERGOCALCIFEROL, FOLIC ACID, NICOTINAMIDE, [Concomitant]
  9. VITAMIN C (VITAMIN C) [Concomitant]
  10. B-12 LATINO DEPOT (CYANOCOBALAMIN-TANNIN COMPLEX) [Concomitant]
  11. CALCIUM (CALCIUM) [Concomitant]
  12. VITAMIN E [Concomitant]
  13. METHOTREXATE [Concomitant]

REACTIONS (5)
  - BODY HEIGHT DECREASED [None]
  - LIPIDS INCREASED [None]
  - MULTIPLE FRACTURES [None]
  - OSTEOPOROSIS [None]
  - PNEUMONIA [None]
